FAERS Safety Report 4766263-8 (Version None)
Quarter: 2005Q3

REPORT INFORMATION
  Report Type: 
  Country: None (occurrence: None)
  Receive Date: 20050909
  Receipt Date: 20050824
  Transmission Date: 20060218
  Serious: Yes (Other)
  Sender: FDA-Public Use
  Company Number: 060001L05FRA

PATIENT
  Age: 37 Year

DRUGS (1)
  1. CLOMIPHENE CITRATE [Suspect]

REACTIONS (1)
  - PANCREATITIS ACUTE [None]
